FAERS Safety Report 6684633 (Version 2)
Quarter: 2014Q4

REPORT INFORMATION
  Report Type: Spontaneous
  Country: US (occurrence: US)
  Receive Date: 20080626
  Receipt Date: 20141229
  Transmission Date: 20150529
  Serious: No
  Sender: FDA-Public Use
  Company Number: US-ASTRAZENECA-2008UW06769

PATIENT
  Age: 64 Year
  Sex: Female
  Weight: 63.5 kg

DRUGS (10)
  1. PULMICORT RESPULES [Suspect]
     Active Substance: BUDESONIDE
     Indication: ASTHMA
     Dosage: 0.5 MG
     Route: 055
  2. PULMICORT RESPULES [Suspect]
     Active Substance: BUDESONIDE
     Indication: ASTHMA
     Dosage: 0.5 MG
     Route: 055
  3. HCTZ [Concomitant]
     Active Substance: HYDROCHLOROTHIAZIDE
  4. ENOXAPARIN [Concomitant]
     Active Substance: ENOXAPARIN
  5. PULMICORT RESPULES [Suspect]
     Active Substance: BUDESONIDE
     Indication: ASTHMA
     Dosage: 1 MG
     Route: 055
  6. XOPINEX [Concomitant]
  7. POTASSIUM SUPPLEMENT [Concomitant]
  8. METOPROLOL-UNSPECIFIED [Suspect]
     Active Substance: METOPROLOL
     Route: 065
  9. CLONIDINE. [Concomitant]
     Active Substance: CLONIDINE
  10. INSULIN PUMP [Concomitant]
     Active Substance: INSULIN NOS

REACTIONS (7)
  - Dizziness [Unknown]
  - Paraesthesia oral [Recovered/Resolved]
  - Stomatitis [Unknown]
  - Nausea [Recovered/Resolved]
  - Contusion [Not Recovered/Not Resolved]
  - Injection site bruising [Not Recovered/Not Resolved]
  - Dyspnoea [Recovered/Resolved]
